FAERS Safety Report 17266724 (Version 1)
Quarter: 2020Q1

REPORT INFORMATION
  Report Type: Spontaneous
  Country: US (occurrence: US)
  Receive Date: 20200113
  Receipt Date: 20200113
  Transmission Date: 20200409
  Serious: Yes (Hospitalization, Disabling, Other)
  Sender: FDA-Public Use
  Company Number: None

PATIENT
  Age: 86 Year
  Sex: Male
  Weight: 72 kg

DRUGS (15)
  1. CITALOPRAM [Suspect]
     Active Substance: CITALOPRAM HYDROBROMIDE
     Indication: ANXIETY
     Dosage: ?          QUANTITY:1 TABLET(S);OTHER FREQUENCY:TAPER REGIMEN;?
     Route: 048
     Dates: start: 20170801
  2. VALACYCLOVIR [Suspect]
     Active Substance: VALACYCLOVIR HYDROCHLORIDE
     Dosage: ?          QUANTITY:1 TABLET(S);?
     Route: 048
     Dates: start: 20200108, end: 20200110
  3. LOSARTAN. [Concomitant]
     Active Substance: LOSARTAN
  4. AMIODARONE [Concomitant]
     Active Substance: AMIODARONE
  5. ICD PACEMAKER DEFIBRILLATOR [Concomitant]
  6. SAW PALMETTO [Concomitant]
     Active Substance: HERBALS\SAW PALMETTO
  7. VITAMIN B12 [Concomitant]
     Active Substance: CYANOCOBALAMIN
  8. MAGNESIUM [Concomitant]
     Active Substance: MAGNESIUM
  9. POTASSIUM [Concomitant]
     Active Substance: POTASSIUM
  10. BIOTIN [Concomitant]
     Active Substance: BIOTIN
  11. LOW DOSE ASPIRIN [Concomitant]
     Active Substance: ASPIRIN
  12. COREG [Concomitant]
     Active Substance: CARVEDILOL
  13. VITAMIN D3 [Concomitant]
     Active Substance: CHOLECALCIFEROL
  14. LORAZEPAM. [Concomitant]
     Active Substance: LORAZEPAM
  15. WARFARIN [Concomitant]
     Active Substance: WARFARIN

REACTIONS (17)
  - Visual impairment [None]
  - Eye swelling [None]
  - Amnesia [None]
  - Agitation [None]
  - Irritability [None]
  - Urticaria [None]
  - Eye inflammation [None]
  - Heart rate increased [None]
  - Coordination abnormal [None]
  - Haemorrhage [None]
  - Anal incontinence [None]
  - Urinary incontinence [None]
  - Disturbance in attention [None]
  - Hallucination [None]
  - Loss of consciousness [None]
  - Aggression [None]
  - Full blood count abnormal [None]

NARRATIVE: CASE EVENT DATE: 20200109
